FAERS Safety Report 23362891 (Version 1)
Quarter: 2024Q1

REPORT INFORMATION
  Report Type: Spontaneous
  Country: US (occurrence: None)
  Receive Date: 20240103
  Receipt Date: 20240103
  Transmission Date: 20240410
  Serious: Yes (Death)
  Sender: FDA-Public Use
  Company Number: None

PATIENT
  Age: 74 Year
  Sex: Male

DRUGS (9)
  1. LOKELMA [Suspect]
     Active Substance: SODIUM ZIRCONIUM CYCLOSILICATE
     Indication: Lung transplant
     Dosage: OTHER FREQUENCY : TID FOR 3 DAYS;?
     Route: 048
     Dates: start: 20231103, end: 20231206
  2. MYCOPHENOLIC ACID [Suspect]
     Active Substance: MYCOPHENOLIC ACID
     Indication: Lung transplant
     Dosage: FREQUENCY : TWICE A DAY;?
     Route: 048
     Dates: start: 20200306, end: 20231206
  3. TACROLIMUS [Concomitant]
     Active Substance: TACROLIMUS
  4. MEGESTROL ACETATE [Concomitant]
     Active Substance: MEGESTROL ACETATE
  5. TACROLIMUS [Concomitant]
     Active Substance: TACROLIMUS
  6. VALGANCICLOVIR [Concomitant]
     Active Substance: VALGANCICLOVIR
  7. IMODIUM A-D [Concomitant]
     Active Substance: LOPERAMIDE HYDROCHLORIDE
  8. TYLENOL [Concomitant]
     Active Substance: ACETAMINOPHEN
  9. MAGNESIUM CHLORIDE [Concomitant]
     Active Substance: MAGNESIUM CHLORIDE

REACTIONS (1)
  - Death [None]

NARRATIVE: CASE EVENT DATE: 20231206
